FAERS Safety Report 18126289 (Version 1)
Quarter: 2020Q3

REPORT INFORMATION
  Report Type: Spontaneous
  Country: PT (occurrence: PT)
  Receive Date: 20200808
  Receipt Date: 20200808
  Transmission Date: 20201103
  Serious: Yes (Hospitalization, Other)
  Sender: FDA-Public Use
  Company Number: PT-AMGEN-PRTSP2020123302

PATIENT
  Age: 31 Year
  Sex: Female

DRUGS (6)
  1. METHYLDOPA. [Concomitant]
     Active Substance: METHYLDOPA
     Dosage: 500 MILLIGRAM, QD
     Dates: start: 201007
  2. FOLIC ACID. [Concomitant]
     Active Substance: FOLIC ACID
     Dosage: 5 MILLIGRAM, QD
     Dates: start: 201007
  3. BETAMETHASONE. [Concomitant]
     Active Substance: BETAMETHASONE
  4. IRON [Concomitant]
     Active Substance: IRON
     Dosage: UNK
     Dates: start: 201007
  5. DARBEPOETIN ALFA [Suspect]
     Active Substance: DARBEPOETIN ALFA
     Indication: CHRONIC KIDNEY DISEASE
     Dosage: 10 MICROGRAM, QWK
     Route: 065
     Dates: start: 201007, end: 2010
  6. ACETYLSALICYLIC ACID [Concomitant]
     Active Substance: ASPIRIN
     Dosage: 100 MILLIGRAM, QD
     Dates: start: 201007

REACTIONS (8)
  - Hypervolaemia [Unknown]
  - Hepatocellular injury [Unknown]
  - Respiratory tract infection [Unknown]
  - Respiratory failure [Unknown]
  - Chronic kidney disease [Unknown]
  - Hypertension [Unknown]
  - Maternal exposure during pregnancy [Unknown]
  - Hyperbilirubinaemia [Unknown]

NARRATIVE: CASE EVENT DATE: 2010
